FAERS Safety Report 5964259-1 (Version None)
Quarter: 2008Q4

REPORT INFORMATION
  Report Type: 
  Country: None (occurrence: None)
  Receive Date: 20081124
  Receipt Date: 20081115
  Transmission Date: 20090506
  Serious: Yes (Other)
  Sender: FDA-Public Use
  Company Number: HR-PFIZER INC-2008096804

PATIENT
  Age: 75 Year
  Sex: Female

DRUGS (1)
  1. LYRICA [Suspect]
     Route: 048
     Dates: start: 20081001

REACTIONS (4)
  - COORDINATION ABNORMAL [None]
  - FALL [None]
  - JOINT INJURY [None]
  - VERTIGO [None]
